FAERS Safety Report 8908877 (Version 1)
Quarter: 2012Q4

REPORT INFORMATION
  Report Type: 
  Country: FR (occurrence: FR)
  Receive Date: 20121114
  Receipt Date: 20121114
  Transmission Date: 20130627
  Serious: Yes (Hospitalization)
  Sender: FDA-Public Use
  Company Number: FR-ROCHE-1149209

PATIENT
  Age: 48 Year
  Sex: Female

DRUGS (11)
  1. MABTHERA [Suspect]
     Indication: CHRONIC LYMPHOCYTIC LEUKAEMIA
     Route: 042
     Dates: start: 20120510, end: 20120906
  2. FLUDARABINE [Suspect]
     Indication: CHRONIC LYMPHOCYTIC LEUKAEMIA
     Route: 042
     Dates: start: 20120906, end: 20120909
  3. ENDOXAN [Suspect]
     Indication: CHRONIC LYMPHOCYTIC LEUKAEMIA
     Route: 042
     Dates: start: 20120906, end: 20120909
  4. ZELITREX [Concomitant]
  5. BACTRIM [Concomitant]
  6. TAVANIC [Concomitant]
     Route: 065
     Dates: start: 20120910
  7. TAZOCILLINE [Concomitant]
     Route: 065
     Dates: start: 20120913
  8. ZARZIO [Concomitant]
     Route: 065
     Dates: start: 20120915, end: 20120919
  9. ZARZIO [Concomitant]
     Route: 065
     Dates: start: 20120924, end: 20120930
  10. CETIRIZINE [Concomitant]
  11. FORTUM [Concomitant]

REACTIONS (8)
  - Febrile bone marrow aplasia [Not Recovered/Not Resolved]
  - Haemolytic anaemia [Not Recovered/Not Resolved]
  - Pyrexia [Recovered/Resolved]
  - Chills [Unknown]
  - Food intolerance [Unknown]
  - Diarrhoea [Unknown]
  - Vomiting [Unknown]
  - Pruritus [Unknown]
